FAERS Safety Report 19880503 (Version 1)
Quarter: 2021Q3

REPORT INFORMATION
  Report Type: Spontaneous
  Country: JP (occurrence: JP)
  Receive Date: 20210924
  Receipt Date: 20210924
  Transmission Date: 20211014
  Serious: Yes (Other)
  Sender: FDA-Public Use
  Company Number: JP-ASTRAZENECA-2021A642901

PATIENT
  Age: 57 Year
  Sex: Male
  Weight: 85 kg

DRUGS (15)
  1. DIPYRIDAMOLE. [Suspect]
     Active Substance: DIPYRIDAMOLE
     Route: 048
  2. MORPHINE HYDROCHLORIDE HYDRATE [Concomitant]
     Active Substance: MORPHINE HYDROCHLORIDE
     Indication: ABDOMINAL PAIN
     Dosage: DOSE UNKNOWN,24 HOURS
     Route: 065
     Dates: start: 20210705, end: 20210709
  3. ETHYL ICOSAPENTATE [Suspect]
     Active Substance: ICOSAPENT ETHYL
     Route: 048
  4. FEBURIC [Suspect]
     Active Substance: FEBUXOSTAT
     Route: 048
  5. NOVORAPID [Concomitant]
     Active Substance: INSULIN ASPART
     Indication: DIABETES MELLITUS
     Dosage: 4?8?12 UNITS
     Route: 058
     Dates: start: 201409
  6. TRESIBA [Concomitant]
     Active Substance: INSULIN DEGLUDEC
     Indication: DIABETES MELLITUS
     Route: 058
     Dates: start: 201409
  7. IMFINZI [Suspect]
     Active Substance: DURVALUMAB
     Indication: SMALL CELL LUNG CANCER
     Route: 041
  8. IMFINZI [Suspect]
     Active Substance: DURVALUMAB
     Indication: SMALL CELL LUNG CANCER
     Route: 041
     Dates: start: 20210706
  9. ROSUVASTATIN. [Suspect]
     Active Substance: ROSUVASTATIN
     Route: 048
  10. CARBOPLATIN. [Concomitant]
     Active Substance: CARBOPLATIN
     Indication: SMALL CELL LUNG CANCER
     Route: 065
     Dates: start: 20210706, end: 20210706
  11. ETOPOSIDE. [Concomitant]
     Active Substance: ETOPOSIDE
     Indication: SMALL CELL LUNG CANCER
     Dosage: ON DAY 1, 2, AND 3 OF EACH CYCLES
     Route: 065
     Dates: start: 20210706
  12. OLMESARTAN [Suspect]
     Active Substance: OLMESARTAN
     Route: 048
  13. LASIX [Concomitant]
     Active Substance: FUROSEMIDE
     Indication: OEDEMA PERIPHERAL
     Dosage: DOSE UNKNOWN
     Route: 065
     Dates: end: 20210716
  14. MS CONTIN [Concomitant]
     Active Substance: MORPHINE SULFATE
     Indication: ABDOMINAL PAIN
     Route: 065
     Dates: start: 20210710
  15. CARBOPLATIN. [Concomitant]
     Active Substance: CARBOPLATIN
     Indication: SMALL CELL LUNG CANCER
     Route: 065
     Dates: start: 20210727

REACTIONS (7)
  - Hepatic function abnormal [Recovered/Resolved]
  - Cortisol decreased [Unknown]
  - Drug eruption [Unknown]
  - Adrenal disorder [Unknown]
  - Malaise [Recovering/Resolving]
  - Dyspnoea [Recovering/Resolving]
  - Blood potassium increased [Unknown]

NARRATIVE: CASE EVENT DATE: 2021
